FAERS Safety Report 20624798 (Version 2)
Quarter: 2022Q2

REPORT INFORMATION
  Report Type: Report from Study
  Country: CO (occurrence: CO)
  Receive Date: 20220323
  Receipt Date: 20220502
  Transmission Date: 20220720
  Serious: Yes (Hospitalization)
  Sender: FDA-Public Use
  Company Number: CO-ABBVIE-22K-036-4324183-00

PATIENT
  Sex: Female
  Weight: 46 kg

DRUGS (3)
  1. HUMIRA [Suspect]
     Active Substance: ADALIMUMAB
     Indication: Product used for unknown indication
     Route: 058
     Dates: start: 20140604
  2. HUMIRA [Suspect]
     Active Substance: ADALIMUMAB
     Indication: Rheumatoid arthritis
     Route: 058
     Dates: end: 20220228
  3. LEVOTHYROXINE [Concomitant]
     Active Substance: LEVOTHYROXINE
     Indication: Thyroid disorder
     Route: 048

REACTIONS (7)
  - Pain [Recovering/Resolving]
  - Arthralgia [Recovering/Resolving]
  - Myalgia [Recovering/Resolving]
  - Inflammation [Recovering/Resolving]
  - Arthritis [Recovering/Resolving]
  - Myositis [Recovering/Resolving]
  - Fibromyalgia [Unknown]

NARRATIVE: CASE EVENT DATE: 20150101
